FAERS Safety Report 20602839 (Version 1)
Quarter: 2022Q1

REPORT INFORMATION
  Report Type: Spontaneous
  Country: US (occurrence: US)
  Receive Date: 20220316
  Receipt Date: 20220316
  Transmission Date: 20220423
  Serious: Yes (Hospitalization, Other)
  Sender: FDA-Public Use
  Company Number: US-UNITED THERAPEUTICS-UNT-2022-003362

PATIENT
  Age: 52 Year
  Sex: Female
  Weight: 73.968 kg

DRUGS (2)
  1. REMODULIN [Suspect]
     Active Substance: TREPROSTINIL
     Indication: Pulmonary arterial hypertension
     Dosage: UNK UNK, CONTINUING
     Route: 058
     Dates: start: 20200417
  2. REMODULIN [Suspect]
     Active Substance: TREPROSTINIL
     Dosage: 0.147 ?G/KG, CONTINUING
     Route: 058

REACTIONS (2)
  - Viral infection [Unknown]
  - Pneumonia [Unknown]

NARRATIVE: CASE EVENT DATE: 20220209
